APPROVED DRUG PRODUCT: NORETHINDRONE ACETATE
Active Ingredient: NORETHINDRONE ACETATE
Strength: 5MG
Dosage Form/Route: TABLET;ORAL
Application: A091090 | Product #001 | TE Code: AB
Applicant: GLENMARK PHARMACEUTICALS LTD
Approved: Jul 21, 2010 | RLD: No | RS: No | Type: RX